FAERS Safety Report 5477967-6 (Version None)
Quarter: 2007Q4

REPORT INFORMATION
  Report Type: 
  Country: None (occurrence: None)
  Receive Date: 20071005
  Receipt Date: 20070924
  Transmission Date: 20080405
  Serious: Yes (Other)
  Sender: FDA-Public Use
  Company Number: US-KINGPHARMUSA00001-K200701248

PATIENT

DRUGS (7)
  1. ALTACE [Suspect]
     Dosage: 5 MG, QD
     Route: 048
     Dates: start: 20070501
  2. PLAVIX [Suspect]
     Dosage: 75 MG, QD
     Route: 048
     Dates: start: 20050901, end: 20070401
  3. PLAVIX [Suspect]
     Dosage: 75 MG, QD
     Route: 048
     Dates: start: 20070401
  4. ASACOL [Suspect]
     Indication: INFLAMMATORY BOWEL DISEASE
     Dosage: 400 MG, BID
     Route: 048
     Dates: start: 20070501
  5. NEXIUM [Suspect]
     Indication: REFLUX OESOPHAGITIS
     Dosage: 40 MG, QD
     Route: 048
     Dates: start: 20070501
  6. ATORVASTATIN CALCIUM [Concomitant]
     Route: 048
     Dates: start: 20050901
  7. ASPIRIN [Concomitant]
     Route: 048
     Dates: start: 20050901

REACTIONS (10)
  - AMNESIA [None]
  - CHEST PAIN [None]
  - DISORIENTATION [None]
  - DISTURBANCE IN ATTENTION [None]
  - DYSPNOEA EXERTIONAL [None]
  - HEADACHE [None]
  - HYPOAESTHESIA [None]
  - HYPOAESTHESIA FACIAL [None]
  - INAPPROPRIATE SCHEDULE OF DRUG ADMINISTRATION [None]
  - OEDEMA PERIPHERAL [None]
